FAERS Safety Report 7458510-9 (Version None)
Quarter: 2011Q2

REPORT INFORMATION
  Report Type: 
  Country: None (occurrence: None)
  Receive Date: 20110426
  Receipt Date: 20110413
  Transmission Date: 20111010
  Serious: Yes (Other)
  Sender: FDA-Public Use
  Company Number: 2011-1036

PATIENT
  Age: 77 Year
  Sex: Female

DRUGS (1)
  1. DYSPORT [Suspect]
     Indication: MUSCLE SPASTICITY
     Dosage: 1000 UNITS (1000 UNITS,SINGLE CYCLE)
     Dates: start: 20100823, end: 20100823

REACTIONS (2)
  - SYNCOPE [None]
  - UNRESPONSIVE TO STIMULI [None]
